FAERS Safety Report 7710261-9 (Version None)
Quarter: 2011Q3

REPORT INFORMATION
  Report Type: 
  Country: None (occurrence: None)
  Receive Date: 20110825
  Receipt Date: 20110820
  Transmission Date: 20111222
  Serious: Yes (Hospitalization)
  Sender: FDA-Public Use
  Company Number: US-BRISTOL-MYERS SQUIBB COMPANY-15936081

PATIENT
  Age: 77 Year
  Sex: Female
  Weight: 120 kg

DRUGS (9)
  1. CEPHALEXIN [Concomitant]
  2. CARBOPLATIN [Suspect]
     Indication: UTERINE CANCER
     Dosage: LAST ADMINISTRATED DATE:07JUL11 AUC-6 IV OVER 30 MIN ON DAYX6 CYC
     Route: 042
     Dates: start: 20110526
  3. METOPROLOL [Concomitant]
  4. LORAZEPAM [Concomitant]
  5. IXEMPRA KIT [Suspect]
     Indication: UTERINE CANCER
     Dosage: LAST DOSE:07JUL11 30MG/M2 IV OVER 1HR ON DAY1*6 CYCLES
     Route: 042
     Dates: start: 20110526
  6. RHUMAB-VEGF [Suspect]
     Indication: UTERINE CANCER
     Dosage: LAST DOSE:07JUL11 15MG/KG IV OVER 30-90MIN ON DAY1*6 CYCLES
     Route: 042
     Dates: start: 20110526
  7. HALOPERIDOL [Concomitant]
  8. FUROSEMIDE [Concomitant]
  9. HYDRALAZINE HCL [Concomitant]

REACTIONS (5)
  - HYPERTENSION [None]
  - POSTERIOR REVERSIBLE ENCEPHALOPATHY SYNDROME [None]
  - NEUTROPHIL COUNT DECREASED [None]
  - PLATELET COUNT DECREASED [None]
  - SINUSITIS [None]
